FAERS Safety Report 6663638-7 (Version None)
Quarter: 2010Q2

REPORT INFORMATION
  Report Type: 
  Country: None (occurrence: None)
  Receive Date: 20100401
  Receipt Date: 20100324
  Transmission Date: 20101027
  Serious: Yes (Hospitalization)
  Sender: FDA-Public Use
  Company Number: NL-ROCHE-691171

PATIENT
  Sex: Female

DRUGS (9)
  1. BEVACIZUMAB [Suspect]
     Indication: BREAST CANCER
     Dosage: LAST DATE OF ADMINISTRATION 09 FEBRUARY 2010. THERPAY DURATION WAS 11 WEEK.
     Route: 042
     Dates: start: 20091209
  2. CAPECITABINE [Suspect]
     Indication: BREAST CANCER
     Dosage: TEMPORARILY DISCONTINUED.
     Route: 048
     Dates: start: 20091209, end: 20100218
  3. PACLITAXEL [Suspect]
     Indication: BREAST CANCER
     Dosage: LAST DATE OF ADMINISTRATION WAS 16 FEBRUARY 2010.
     Route: 042
     Dates: start: 20091209
  4. OXYCODONE HCL [Concomitant]
     Dates: start: 20090801
  5. FENTANYL-25 [Concomitant]
     Dosage: FREQUENCY 25 UG/H/2 DAYS
     Dates: start: 20090801
  6. CELEBREX [Concomitant]
     Dates: start: 20090901
  7. PRIMPERAN INJ [Concomitant]
     Dates: start: 20090801
  8. OMEPRAZOLE [Concomitant]
     Dates: start: 20090801
  9. MOVICOLON [Concomitant]
     Dosage: DOSE 1 SACHET
     Dates: start: 20090801

REACTIONS (2)
  - HAEMOGLOBIN DECREASED [None]
  - RADICULAR SYNDROME [None]
